FAERS Safety Report 13648825 (Version 2)
Quarter: 2017Q2

REPORT INFORMATION
  Report Type: Report from Study
  Country: US (occurrence: US)
  Receive Date: 20170613
  Receipt Date: 20170627
  Transmission Date: 20170830
  Serious: Yes (Death)
  Sender: FDA-Public Use
  Company Number: US-BAYER-2017-107031

PATIENT
  Age: 71 Year
  Sex: Female

DRUGS (1)
  1. BETASERON [Suspect]
     Active Substance: INTERFERON BETA-1B
     Indication: MULTIPLE SCLEROSIS
     Dosage: 0.25 MG, THREE(3) TIMES PER WEEK
     Route: 058
     Dates: start: 20131220, end: 20170503

REACTIONS (1)
  - Death [Fatal]

NARRATIVE: CASE EVENT DATE: 20170503
